FAERS Safety Report 7810580-1 (Version None)
Quarter: 2011Q4

REPORT INFORMATION
  Report Type: 
  Country: None (occurrence: None)
  Receive Date: 20111013
  Receipt Date: 20111010
  Transmission Date: 20120403
  Serious: No
  Sender: FDA-Public Use
  Company Number: US-BIOGENIDEC-2010BI032684

PATIENT
  Age: 38 Year
  Sex: Female

DRUGS (2)
  1. AVONEX [Concomitant]
     Indication: MULTIPLE SCLEROSIS
     Route: 030
     Dates: start: 20090620
  2. TYSABRI [Suspect]
     Indication: MULTIPLE SCLEROSIS
     Route: 042
     Dates: start: 20100802

REACTIONS (11)
  - ARTHRALGIA [None]
  - WEIGHT DECREASED [None]
  - JOINT DISLOCATION [None]
  - EAR CONGESTION [None]
  - HEADACHE [None]
  - MUSCLE ATROPHY [None]
  - NASOPHARYNGITIS [None]
  - INCOHERENT [None]
  - DECREASED APPETITE [None]
  - ABASIA [None]
  - BRONCHITIS [None]
